FAERS Safety Report 6935842-1 (Version None)
Quarter: 2010Q3

REPORT INFORMATION
  Report Type: 
  Country: None (occurrence: None)
  Receive Date: 20100819
  Receipt Date: 20100819
  Transmission Date: 20110219
  Serious: Yes (Hospitalization)
  Sender: FDA-Public Use
  Company Number: None

PATIENT
  Sex: Male
  Weight: 108.6 kg

DRUGS (2)
  1. CARBOPLATIN [Suspect]
     Dosage: 198 MG
     Dates: end: 20100809
  2. TAXOL [Suspect]
     Dosage: 102 MG
     Dates: end: 20100809

REACTIONS (15)
  - BURNING SENSATION [None]
  - CHILLS [None]
  - COUGH [None]
  - DEHYDRATION [None]
  - DYSPNOEA [None]
  - FATIGUE [None]
  - HYPOPHAGIA [None]
  - LEUKOPENIA [None]
  - MALAISE [None]
  - NORMOCHROMIC NORMOCYTIC ANAEMIA [None]
  - ODYNOPHAGIA [None]
  - OESOPHAGITIS [None]
  - PAIN [None]
  - PYREXIA [None]
  - RENAL FAILURE ACUTE [None]
